FAERS Safety Report 15635233 (Version 2)
Quarter: 2019Q1

REPORT INFORMATION
  Report Type: Spontaneous
  Country: CA (occurrence: CA)
  Receive Date: 20181120
  Receipt Date: 20190122
  Transmission Date: 20190417
  Serious: Yes (Other)
  Sender: FDA-Public Use
  Company Number: CA-009507513-1811CAN006874

PATIENT
  Age: 41 Year
  Sex: Female
  Weight: 69.7 kg

DRUGS (3)
  1. FRAGMIN [Concomitant]
     Active Substance: DALTEPARIN SODIUM
     Indication: JUGULAR VEIN THROMBOSIS
     Dosage: 18000 U
     Route: 058
     Dates: start: 20180827
  2. KEYTRUDA [Suspect]
     Active Substance: PEMBROLIZUMAB
     Indication: NON-SMALL CELL LUNG CANCER METASTATIC
     Dosage: 200 MILLIGRAM, Q21DAYS, DISCONTINUED AFTER 4 CYCLES
     Route: 065
     Dates: start: 20180912, end: 20181204
  3. FRAGMIN [Concomitant]
     Active Substance: DALTEPARIN SODIUM
     Dosage: INCREASED BY 30%
     Route: 058
     Dates: start: 20181103

REACTIONS (2)
  - Malignant neoplasm progression [Unknown]
  - Thrombosis [Recovered/Resolved]

NARRATIVE: CASE EVENT DATE: 2018
